FAERS Safety Report 14994971 (Version 13)
Quarter: 2019Q1

REPORT INFORMATION
  Report Type: Report from Study
  Country: US (occurrence: US)
  Receive Date: 20180611
  Receipt Date: 20190213
  Transmission Date: 20190417
  Serious: Yes (Hospitalization, Other)
  Sender: FDA-Public Use
  Company Number: PHEH2018US022559

PATIENT
  Age: 62 Year
  Sex: Male
  Weight: 108 kg

DRUGS (9)
  1. AMIODARONE [Suspect]
     Active Substance: AMIODARONE
     Indication: PRODUCT USED FOR UNKNOWN INDICATION
     Dosage: 200 MG, QD
     Route: 048
     Dates: start: 20171126
  2. PROZAC [Suspect]
     Active Substance: FLUOXETINE HYDROCHLORIDE
     Indication: PRODUCT USED FOR UNKNOWN INDICATION
     Dosage: 40 MG, UNK
     Route: 048
     Dates: start: 20140604
  3. KLONOPIN [Suspect]
     Active Substance: CLONAZEPAM
     Indication: PRODUCT USED FOR UNKNOWN INDICATION
     Dosage: 2 MG, PRN
     Route: 048
     Dates: start: 20171127
  4. DIGOXIN. [Suspect]
     Active Substance: DIGOXIN
     Indication: PRODUCT USED FOR UNKNOWN INDICATION
     Dosage: 0.125 MG, UNK
     Route: 048
     Dates: start: 20120904
  5. SYNTHROID [Suspect]
     Active Substance: LEVOTHYROXINE SODIUM
     Indication: PRODUCT USED FOR UNKNOWN INDICATION
     Dosage: 50 UG, UNK
     Route: 048
     Dates: start: 20170802
  6. ASA [Suspect]
     Active Substance: ASPIRIN
     Indication: PRODUCT USED FOR UNKNOWN INDICATION
     Dosage: 81 MG, QD
     Route: 048
     Dates: start: 20130505
  7. COREG [Suspect]
     Active Substance: CARVEDILOL
     Indication: PRODUCT USED FOR UNKNOWN INDICATION
     Dosage: 3.12 MG, BID
     Route: 048
     Dates: start: 20170127
  8. ENTRESTO [Suspect]
     Active Substance: SACUBITRIL\VALSARTAN
     Indication: PRODUCT USED FOR UNKNOWN INDICATION
     Dosage: 50 MG (24MG OF SACUBITRIL AND 26MG OF VALSARTAN), BID
     Route: 065
     Dates: start: 20140130
  9. POTASSIUM CHLORIDE. [Suspect]
     Active Substance: POTASSIUM CHLORIDE
     Indication: PRODUCT USED FOR UNKNOWN INDICATION
     Dosage: 20 UG, UNK
     Route: 048
     Dates: start: 20170803

REACTIONS (26)
  - Loss of consciousness [Unknown]
  - Dehydration [Unknown]
  - Aphasia [Unknown]
  - Dizziness [Unknown]
  - Balance disorder [Unknown]
  - Fatigue [Unknown]
  - Glomerular filtration rate decreased [Unknown]
  - Impaired reasoning [Unknown]
  - Gait disturbance [Unknown]
  - Fall [Unknown]
  - Exercise tolerance decreased [Unknown]
  - Oedema peripheral [Unknown]
  - Chest pain [Unknown]
  - Hypotension [Recovered/Resolved]
  - Amnesia [Unknown]
  - Chest discomfort [Unknown]
  - Speech disorder [Unknown]
  - Memory impairment [Unknown]
  - Transient ischaemic attack [Not Recovered/Not Resolved]
  - Mental status changes [Unknown]
  - Dyspnoea [Unknown]
  - Sensory loss [Unknown]
  - Syncope [Unknown]
  - Cerebrovascular accident [Unknown]
  - Confusional state [Unknown]
  - Malaise [Unknown]

NARRATIVE: CASE EVENT DATE: 20170117
